FAERS Safety Report 9643384 (Version 3)
Quarter: 2013Q4

REPORT INFORMATION
  Report Type: Spontaneous
  Country: FR (occurrence: FR)
  Receive Date: 20131024
  Receipt Date: 20131111
  Transmission Date: 20140711
  Serious: Yes (Other)
  Sender: FDA-Public Use
  Company Number: ALCN2013FR005283

PATIENT
  Age: 56 Year
  Sex: Female
  Weight: 62 kg

DRUGS (2)
  1. TRAVATAN PQ [Suspect]
     Indication: GLAUCOMA
     Dosage: 1 GTT, QD
     Route: 047
     Dates: start: 20130930
  2. ZALERG [Suspect]
     Indication: HYPERSENSITIVITY
     Dosage: 1 GTT, BID
     Route: 047
     Dates: start: 20130930, end: 20131005

REACTIONS (2)
  - Ulcerative keratitis [Recovering/Resolving]
  - Foreign body in eye [Recovered/Resolved with Sequelae]
